FAERS Safety Report 7778359-7 (Version None)
Quarter: 2011Q3

REPORT INFORMATION
  Report Type: 
  Country: None (occurrence: None)
  Receive Date: 20110926
  Receipt Date: 20110920
  Transmission Date: 20111222
  Serious: Yes (Hospitalization)
  Sender: FDA-Public Use
  Company Number: PHHY2011CN81860

PATIENT
  Age: 55 Year
  Sex: Female

DRUGS (1)
  1. ZOLEDRONOC ACID [Suspect]
     Indication: OSTEOPOROSIS
     Dosage: 5 MG, UNK
     Route: 042
     Dates: start: 20110913

REACTIONS (10)
  - CHILLS [None]
  - EYE SWELLING [None]
  - PYREXIA [None]
  - MUSCULOSKELETAL STIFFNESS [None]
  - DACRYOADENITIS ACQUIRED [None]
  - EYE ALLERGY [None]
  - LACRIMATION INCREASED [None]
  - EYE PAIN [None]
  - PALPITATIONS [None]
  - OCULAR HYPERAEMIA [None]
